FAERS Safety Report 19826242 (Version 1)
Quarter: 2021Q3

REPORT INFORMATION
  Report Type: Spontaneous
  Country: AU (occurrence: AU)
  Receive Date: 20210914
  Receipt Date: 20210914
  Transmission Date: 20211014
  Serious: Yes (Hospitalization, Other)
  Sender: FDA-Public Use
  Company Number: AU-MICRO LABS LIMITED-ML2021-02138

PATIENT
  Age: 64 Year
  Sex: Male

DRUGS (6)
  1. HYDROCHLOROTHIAZIDE. [Concomitant]
     Active Substance: HYDROCHLOROTHIAZIDE
  2. ATORVASTATIN [Suspect]
     Active Substance: ATORVASTATIN
  3. ROSUVASTATIN. [Suspect]
     Active Substance: ROSUVASTATIN
  4. OLMESARTAN [Concomitant]
     Active Substance: OLMESARTAN
  5. ALLOPURINOL. [Concomitant]
     Active Substance: ALLOPURINOL
  6. SPIRONOLACTONE. [Concomitant]
     Active Substance: SPIRONOLACTONE

REACTIONS (2)
  - Dermatomyositis [Recovered/Resolved]
  - Troponin increased [Recovered/Resolved]
